FAERS Safety Report 10264510 (Version 1)
Quarter: 2014Q2

REPORT INFORMATION
  Report Type: Spontaneous
  Country: US (occurrence: None)
  Receive Date: 20140624
  Receipt Date: 20140624
  Transmission Date: 20141212
  Serious: No
  Sender: FDA-Public Use
  Company Number: C-14-066

PATIENT
  Sex: Female

DRUGS (2)
  1. OXYCODONE [Suspect]
     Indication: PAIN
     Dosage: 5-6X/DAY
     Route: 048
  2. OXYCODONE [Suspect]
     Indication: PSORIASIS
     Dosage: 5-6X/DAY
     Route: 048

REACTIONS (2)
  - Drug withdrawal syndrome [None]
  - Drug ineffective [None]
